FAERS Safety Report 6727889-5 (Version None)
Quarter: 2010Q2

REPORT INFORMATION
  Report Type: 
  Country: None (occurrence: None)
  Receive Date: 20100517
  Receipt Date: 20100510
  Transmission Date: 20101027
  Serious: Yes (Hospitalization)
  Sender: FDA-Public Use
  Company Number: JP-SANOFI-AVENTIS-2010SA019062

PATIENT
  Age: 74 Year
  Sex: Female
  Weight: 62.5 kg

DRUGS (8)
  1. PLAVIX [Suspect]
     Dates: start: 20090309, end: 20100219
  2. AMLODIPINE [Suspect]
     Indication: HYPERTENSION
     Dosage: DOSE AS USED: 2.5 (UNITS UNKNOWN)
     Route: 048
     Dates: start: 20090309, end: 20100302
  3. CANDESARTAN CILEXETIL [Suspect]
     Indication: HYPERTENSION
     Route: 048
  4. EPEL [Suspect]
     Indication: DRUG USE FOR UNKNOWN INDICATION
     Route: 048
     Dates: end: 20100302
  5. ETIZOLAM [Suspect]
     Indication: DRUG USE FOR UNKNOWN INDICATION
     Route: 048
  6. EVISTA [Suspect]
     Indication: DRUG USE FOR UNKNOWN INDICATION
     Route: 048
     Dates: end: 20100302
  7. NEUROVITAN [Concomitant]
     Dosage: DOSE AS USED: 1 TABLET
     Route: 048
     Dates: end: 20100302
  8. GASLON [Concomitant]
     Route: 048
     Dates: start: 20090309, end: 20100302

REACTIONS (2)
  - GASTRIC ULCER [None]
  - GASTRIC ULCER HAEMORRHAGE [None]
